FAERS Safety Report 23116561 (Version 1)
Quarter: 2023Q4

REPORT INFORMATION
  Report Type: Report from Study
  Country: CA (occurrence: CA)
  Receive Date: 20231027
  Receipt Date: 20231027
  Transmission Date: 20240109
  Serious: Yes (Other)
  Sender: FDA-Public Use
  Company Number: CA-MYLANLABS-2022M1117095

PATIENT
  Sex: Male

DRUGS (1)
  1. HULIO [Suspect]
     Active Substance: ADALIMUMAB-FKJP
     Indication: Rheumatoid arthritis
     Dosage: 40 MILLIGRAM, BIWEEKLY, (14)
     Route: 058
     Dates: start: 20210830

REACTIONS (4)
  - Myocardial infarction [Unknown]
  - Arthralgia [Unknown]
  - Dyspnoea [Unknown]
  - Therapy interrupted [Unknown]
